FAERS Safety Report 8909899 (Version 2)
Quarter: 2012Q4

REPORT INFORMATION
  Report Type: 
  Country: US (occurrence: US)
  Receive Date: 20121115
  Receipt Date: 20121127
  Transmission Date: 20130627
  Serious: Yes (Other)
  Sender: FDA-Public Use
  Company Number: US-PFIZER INC-2012283729

PATIENT
  Age: 89 Year
  Sex: Male
  Weight: 81.63 kg

DRUGS (3)
  1. LYRICA [Suspect]
     Indication: FOOT DISCOMFORT
     Dosage: 300 mg once, twice or three times a day as needed
     Dates: start: 2007
  2. LYRICA [Suspect]
     Indication: FIBROMYALGIA
  3. ASPIRIN [Concomitant]
     Dosage: 81 mg, daily

REACTIONS (6)
  - Fall [Unknown]
  - Injury [Unknown]
  - Somnolence [Unknown]
  - Face injury [Unknown]
  - Heart rate irregular [Unknown]
  - Impaired driving ability [Unknown]
